FAERS Safety Report 26041266 (Version 1)
Quarter: 2025Q4

REPORT INFORMATION
  Report Type: Spontaneous
  Country: JP (occurrence: JP)
  Receive Date: 20251113
  Receipt Date: 20251113
  Transmission Date: 20260117
  Serious: Yes (Hospitalization, Other)
  Sender: ALEXION PHARMACEUTICALS
  Company Number: JP-AstraZeneca-CH-00988877A

PATIENT
  Age: 83 Year
  Sex: Female

DRUGS (1)
  1. CRESTOR [Suspect]
     Active Substance: ROSUVASTATIN CALCIUM
     Indication: Hyperlipidaemia
     Dosage: 2.5 MILLIGRAM, QD

REACTIONS (4)
  - Aneurysm ruptured [Recovering/Resolving]
  - Cardiac tamponade [Unknown]
  - Coronary artery aneurysm [Unknown]
  - Congenital coronary artery malformation [Unknown]
